FAERS Safety Report 4736583-1 (Version None)
Quarter: 2005Q3

REPORT INFORMATION
  Report Type: 
  Country: None (occurrence: None)
  Receive Date: 20050803
  Receipt Date: 20050719
  Transmission Date: 20060218
  Serious: Yes (Hospitalization)
  Sender: FDA-Public Use
  Company Number: CIO05012460

PATIENT
  Age: 85 Year
  Sex: Female
  Weight: 86.2 kg

DRUGS (3)
  1. METAMUCIL, APPLE OR APPLE CRISP FLAVOR (PSYLLIUM HYDROPHILIC MUCILLOID [Suspect]
     Dosage: 4 WATER, 1/DAY FOR 6 DAYS, ORAL
     Route: 048
     Dates: start: 20050703, end: 20050708
  2. ANTIHYPERTENSIVES [Concomitant]
  3. DIURETICS [Concomitant]

REACTIONS (4)
  - ABDOMINAL DISTENSION [None]
  - ASTHENIA [None]
  - NAUSEA [None]
  - VOMITING [None]
